FAERS Safety Report 11654872 (Version 3)
Quarter: 2015Q4

REPORT INFORMATION
  Report Type: Spontaneous
  Country: US (occurrence: US)
  Receive Date: 20151023
  Receipt Date: 20151125
  Transmission Date: 20160304
  Serious: Yes (Other)
  Sender: FDA-Public Use
  Company Number: US-BAYER-2015-446196

PATIENT
  Age: 33 Year
  Sex: Female
  Weight: 46.71 kg

DRUGS (1)
  1. MIRENA [Suspect]
     Active Substance: LEVONORGESTREL
     Indication: CONTRACEPTION
     Dosage: 20 MCG/24HR, CONT
     Route: 015
     Dates: start: 20150911, end: 20150911

REACTIONS (8)
  - Nausea [Recovering/Resolving]
  - Device difficult to use [None]
  - Embedded device [Recovering/Resolving]
  - Pelvic pain [Recovering/Resolving]
  - Syncope [Recovering/Resolving]
  - Abdominal pain lower [Recovering/Resolving]
  - Procedural pain [Recovering/Resolving]
  - Complication of device insertion [None]

NARRATIVE: CASE EVENT DATE: 201509
